FAERS Safety Report 6902375-8 (Version None)
Quarter: 2010Q3

REPORT INFORMATION
  Report Type: 
  Country: None (occurrence: None)
  Receive Date: 20100803
  Receipt Date: 20080520
  Transmission Date: 20110219
  Serious: No
  Sender: FDA-Public Use
  Company Number: US-PFIZER INC-2008031978

PATIENT
  Sex: Female
  Weight: 70.3 kg

DRUGS (3)
  1. LYRICA [Suspect]
     Indication: FIBROMYALGIA
     Dates: start: 20080325
  2. FLEXERIL [Concomitant]
  3. ADIPEX [Concomitant]

REACTIONS (3)
  - COORDINATION ABNORMAL [None]
  - COUGH [None]
  - FEELING DRUNK [None]
